FAERS Safety Report 19145362 (Version 2)
Quarter: 2021Q2

REPORT INFORMATION
  Report Type: Spontaneous
  Country: US (occurrence: US)
  Receive Date: 20210416
  Receipt Date: 20210423
  Transmission Date: 20210717
  Serious: Yes (Congenital Anomaly, Other)
  Sender: FDA-Public Use
  Company Number: US-VERTEX PHARMACEUTICALS-2021-005619

PATIENT
  Age: 1 Month
  Sex: Male
  Weight: 3 kg

DRUGS (16)
  1. URSODIOL. [Concomitant]
     Active Substance: URSODIOL
     Indication: CHOLESTASIS
     Dosage: 2 TABLETS
     Route: 048
     Dates: start: 20201123, end: 20210216
  2. PRENATAL VITAMINS [MINERALS NOS;VITAMINS NOS] [Concomitant]
     Active Substance: MINERALS\VITAMINS
     Indication: PREGNANCY
     Dosage: 1 TABLET
     Route: 048
  3. INSULIN ASPART [Concomitant]
     Active Substance: INSULIN ASPART
     Indication: CYSTIC FIBROSIS RELATED DIABETES
     Dosage: WITH MEALS
     Route: 058
     Dates: start: 2020
  4. VALTREX [Concomitant]
     Active Substance: VALACYCLOVIR HYDROCHLORIDE
     Indication: PROPHYLAXIS
  5. CAYSTON [Concomitant]
     Active Substance: AZTREONAM
     Indication: PSEUDOMONAS INFECTION
     Dosage: 1 ML
     Dates: start: 2020
  6. FLUTICASONE. [Concomitant]
     Active Substance: FLUTICASONE
     Indication: HYPERSENSITIVITY
     Dosage: 1 SPRAY IN EACH NOSTRIL QD
     Route: 045
  7. CHOLECALCIFEROL [Concomitant]
     Active Substance: CHOLECALCIFEROL
     Indication: VITAMIN SUPPLEMENTATION
     Dosage: 1 CAPSULE TWICE WEEKLY
     Route: 048
  8. ALBUTEROL [SALBUTAMOL] [Concomitant]
     Active Substance: ALBUTEROL
     Indication: OBSTRUCTIVE AIRWAYS DISORDER
     Dosage: 1 VIAL (3ML) BID
     Dates: start: 2020
  9. PULMOZYME [Concomitant]
     Active Substance: DORNASE ALFA
     Indication: OBSTRUCTIVE AIRWAYS DISORDER
     Dosage: 1 VIAL (2.5 MG) BID
  10. VALTREX [Concomitant]
     Active Substance: VALACYCLOVIR HYDROCHLORIDE
     Indication: GENITAL HERPES
     Dosage: UNK, BID
     Route: 048
     Dates: start: 20200804, end: 20210121
  11. CETIRIZINE [Concomitant]
     Active Substance: CETIRIZINE HYDROCHLORIDE
     Indication: HYPERSENSITIVITY
     Dosage: 1 TAB QD
     Route: 048
     Dates: start: 2020
  12. CREON [Concomitant]
     Active Substance: PANCRELIPASE AMYLASE\PANCRELIPASE LIPASE\PANCRELIPASE PROTEASE
     Indication: PANCREATIC FAILURE
     Dosage: 3 CAPSULES WITH MEALS 3 TIMES A DAY + 2 CAP WITH SNACKS 2?3 TIMES A DAY
     Route: 048
     Dates: start: 2020
  13. INSULIN GLARGINE [Concomitant]
     Active Substance: INSULIN GLARGINE
     Indication: CYSTIC FIBROSIS RELATED DIABETES
     Dosage: 8 UNITS
     Route: 058
     Dates: start: 2020
  14. TRIKAFTA [Suspect]
     Active Substance: ELEXACAFTOR\IVACAFTOR\TEZACAFTOR
     Dosage: UNK
     Route: 048
     Dates: start: 2020
  15. HYPERTONIC SALINE SOLUTION [Concomitant]
     Active Substance: SODIUM CHLORIDE
     Indication: OBSTRUCTIVE AIRWAYS DISORDER
     Dosage: 1 VIAL (4 ML) BID
     Dates: start: 2020
  16. TRIKAFTA [Suspect]
     Active Substance: ELEXACAFTOR\IVACAFTOR\TEZACAFTOR
     Indication: CYSTIC FIBROSIS
     Dosage: 2 TABS (100MG ELEXA/ 50MG TEZA /IVA 75MG IVA) AM; 1 TAB (150MG IVA) PM
     Route: 048
     Dates: start: 20200108, end: 2020

REACTIONS (1)
  - Neonatal hypoacusis [Unknown]

NARRATIVE: CASE EVENT DATE: 20210401
